FAERS Safety Report 8906762 (Version 1)
Quarter: 2012Q4

REPORT INFORMATION
  Report Type: 
  Country: JP (occurrence: JP)
  Receive Date: 20121114
  Receipt Date: 20121114
  Transmission Date: 20130627
  Serious: Yes (Other)
  Sender: FDA-Public Use
  Company Number: JP-FOUGERA-2012FO001394

PATIENT
  Age: 56 Year
  Sex: Male

DRUGS (3)
  1. CLOBETASOL PROPIONATE [Suspect]
     Indication: PSORIASIS
     Route: 061
  2. CALCIPOTRIOL [Concomitant]
     Indication: PSORIASIS
     Route: 061
  3. CYCLOSPORIN [Concomitant]
     Indication: PSORIASIS
     Route: 061

REACTIONS (4)
  - Osteonecrosis [Recovering/Resolving]
  - Adrenal suppression [Unknown]
  - Incorrect drug administration duration [Unknown]
  - Skin atrophy [Unknown]
